FAERS Safety Report 6199372-X (Version None)
Quarter: 2009Q2

REPORT INFORMATION
  Report Type: 
  Country: None (occurrence: None)
  Receive Date: 20090522
  Receipt Date: 20090513
  Transmission Date: 20091009
  Serious: Yes (Other)
  Sender: FDA-Public Use
  Company Number: US-JNJCH-2009013349

PATIENT
  Sex: Female

DRUGS (5)
  1. BENADRYL [Suspect]
     Indication: HYPERSENSITIVITY
     Dosage: TEXT:1 TABLET 4 X A DAY
     Route: 048
  2. LORATADINE [Suspect]
     Indication: DRUG USE FOR UNKNOWN INDICATION
     Dosage: TEXT:UNSPECIFIED
     Route: 065
  3. ATENOL [Concomitant]
     Indication: THYROID DISORDER
     Dosage: TEXT:UNSPECIFIED
     Route: 065
  4. THYROXIN [Concomitant]
     Indication: THYROID DISORDER
     Dosage: TEXT:UNSPECIFIED
     Route: 065
  5. VITAMINS [Concomitant]
     Indication: DRUG USE FOR UNKNOWN INDICATION
     Dosage: TEXT:UNSPECIFIED
     Route: 065

REACTIONS (4)
  - BLISTER [None]
  - EYE SWELLING [None]
  - RASH ERYTHEMATOUS [None]
  - SWELLING FACE [None]
